FAERS Safety Report 5374316-9 (Version None)
Quarter: 2007Q2

REPORT INFORMATION
  Report Type: 
  Country: None (occurrence: None)
  Receive Date: 20070629
  Receipt Date: 20070622
  Transmission Date: 20071010
  Serious: Yes (Hospitalization)
  Sender: FDA-Public Use
  Company Number: PHEH2007US08907

PATIENT
  Age: 7 Year
  Sex: Male
  Weight: 30.8 kg

DRUGS (1)
  1. TRILEPTAL [Suspect]
     Indication: EPILEPSY
     Dosage: 300 MG, BID
     Route: 048

REACTIONS (4)
  - ADENOIDAL HYPERTROPHY [None]
  - DYSPHAGIA [None]
  - TONSILLAR HYPERTROPHY [None]
  - TONSILLECTOMY [None]
